FAERS Safety Report 10086994 (Version 1)
Quarter: 2014Q2

REPORT INFORMATION
  Report Type: Spontaneous
  Country: US (occurrence: US)
  Receive Date: 20140418
  Receipt Date: 20140418
  Transmission Date: 20141212
  Serious: Yes (Other)
  Sender: FDA-Public Use
  Company Number: US-PFIZER INC-2014107546

PATIENT
  Age: 52 Year
  Sex: Male
  Weight: 113 kg

DRUGS (1)
  1. LYRICA [Suspect]
     Indication: NEUROPATHY PERIPHERAL
     Dosage: 150 MG (75 MG X 2) 2 TIMES A DAY
     Route: 048
     Dates: start: 2004

REACTIONS (3)
  - Cerebral haemorrhage [Unknown]
  - Diabetes mellitus [Not Recovered/Not Resolved]
  - Diabetic neuropathy [Unknown]
